FAERS Safety Report 24040951 (Version 1)
Quarter: 2024Q3

REPORT INFORMATION
  Report Type: Report from Study
  Country: CA (occurrence: CA)
  Receive Date: 20240702
  Receipt Date: 20240702
  Transmission Date: 20241017
  Serious: Yes (Other)
  Sender: BIOCON
  Company Number: CA-BIOCON BIOLOGICS LIMITED-BBL2024004734

PATIENT

DRUGS (1)
  1. HULIO [Suspect]
     Active Substance: ADALIMUMAB-FKJP
     Indication: Psoriatic arthropathy
     Dosage: 1 EVERY 2 WEEKS
     Route: 058

REACTIONS (7)
  - Gait disturbance [Unknown]
  - Loss of personal independence in daily activities [Unknown]
  - Muscle rigidity [Unknown]
  - Psoriatic arthropathy [Unknown]
  - Back pain [Unknown]
  - Musculoskeletal stiffness [Unknown]
  - Product storage error [Unknown]
